FAERS Safety Report 9399208 (Version 2)
Quarter: 2013Q3

REPORT INFORMATION
  Report Type: Spontaneous
  Country: GB (occurrence: None)
  Receive Date: 20130710
  Receipt Date: 20130715
  Transmission Date: 20140515
  Serious: Yes (Other)
  Sender: FDA-Public Use
  Company Number: AUR-APL-2013-05650

PATIENT
  Age: 64 Year
  Sex: Male

DRUGS (4)
  1. TAMSULOSIN [Suspect]
     Indication: PRODUCT USED FOR UNKNOWN INDICATION
  2. VESICARE [Suspect]
     Indication: POLLAKIURIA
     Dates: start: 20130405, end: 20130502
  3. FINASTERIDE (FINASTERIDE) [Concomitant]
  4. INSULIN (INSULIN) [Concomitant]

REACTIONS (12)
  - Constipation [None]
  - Faecaloma [None]
  - Vision blurred [None]
  - Fatigue [None]
  - Headache [None]
  - Dizziness [None]
  - Abnormal dreams [None]
  - Dysuria [None]
  - Lip swelling [None]
  - Urinary retention [None]
  - Pain [None]
  - Urinary tract infection [None]
